FAERS Safety Report 5474990-2 (Version None)
Quarter: 2007Q4

REPORT INFORMATION
  Report Type: 
  Country: None (occurrence: None)
  Receive Date: 20071002
  Receipt Date: 20070919
  Transmission Date: 20080405
  Serious: Yes (Other)
  Sender: FDA-Public Use
  Company Number: GB-ELI_LILLY_AND_COMPANY-GB200706001785

PATIENT
  Age: 12 Year
  Sex: Male
  Weight: 46 kg

DRUGS (4)
  1. STRATTERA [Suspect]
     Indication: ATTENTION DEFICIT/HYPERACTIVITY DISORDER
     Dosage: 25 MG, UNK
     Route: 048
     Dates: start: 20070525, end: 20070601
  2. STRATTERA [Suspect]
     Dosage: 40 MG, UNK
     Route: 048
     Dates: start: 20070601, end: 20070607
  3. STRATTERA [Suspect]
     Dosage: 18 MG, DAILY (1/D)
     Route: 048
     Dates: start: 20070718
  4. STRATTERA [Suspect]
     Dosage: 25 MG, DAILY (1/D)
     Route: 048

REACTIONS (4)
  - ERYTHEMA [None]
  - FEELING ABNORMAL [None]
  - PRURITUS [None]
  - RASH MACULAR [None]
